FAERS Safety Report 9592396 (Version 1)
Quarter: 2013Q4

REPORT INFORMATION
  Report Type: Report from Study
  Country: US (occurrence: US)
  Receive Date: 20131004
  Receipt Date: 20131004
  Transmission Date: 20140711
  Serious: Yes (Other)
  Sender: FDA-Public Use
  Company Number: US-JNJFOC-20130915538

PATIENT
  Age: 64 Year
  Sex: Female
  Weight: 98.43 kg

DRUGS (6)
  1. REMICADE [Suspect]
     Indication: ANKYLOSING SPONDYLITIS
     Route: 042
     Dates: start: 2003
  2. REMICADE [Suspect]
     Indication: RHEUMATOID ARTHRITIS
     Route: 042
     Dates: start: 2003
  3. METFORMIN [Concomitant]
     Indication: DIABETES MELLITUS
     Route: 065
     Dates: end: 201210
  4. PREDNISONE ACETATE [Concomitant]
     Indication: IRITIS
     Route: 047
  5. ATROPINE [Concomitant]
     Indication: IRITIS
     Route: 047
  6. SYSTANE [Concomitant]
     Indication: DRY EYE
     Route: 047

REACTIONS (5)
  - Arthropathy [Not Recovered/Not Resolved]
  - Myalgia [Not Recovered/Not Resolved]
  - Drug effect decreased [Not Recovered/Not Resolved]
  - Weight increased [Not Recovered/Not Resolved]
  - Weight decreased [Unknown]
